FAERS Safety Report 23771573 (Version 3)
Quarter: 2024Q2

REPORT INFORMATION
  Report Type: Report from Study
  Country: JP (occurrence: JP)
  Receive Date: 20240423
  Receipt Date: 20240503
  Transmission Date: 20240716
  Serious: Yes (Other)
  Sender: FDA-Public Use
  Company Number: JP-JNJFOC-20240458855

PATIENT
  Age: 21 Year
  Sex: Female

DRUGS (10)
  1. SIRTURO [Suspect]
     Active Substance: BEDAQUILINE FUMARATE
     Indication: Pulmonary tuberculosis
     Route: 048
     Dates: start: 20230131, end: 20230212
  2. SIRTURO [Suspect]
     Active Substance: BEDAQUILINE FUMARATE
     Route: 048
     Dates: start: 20230214
  3. LINEZOLID [Suspect]
     Active Substance: LINEZOLID
     Indication: Pulmonary tuberculosis
     Route: 048
     Dates: start: 20230131, end: 20230721
  4. DELAMANID [Concomitant]
     Active Substance: DELAMANID
     Indication: Pulmonary tuberculosis
     Route: 048
     Dates: start: 20230131
  5. CYCLOSERINE [Concomitant]
     Active Substance: CYCLOSERINE
     Indication: Pulmonary tuberculosis
     Route: 048
     Dates: start: 20230131
  6. CLOFAZIMINE [Concomitant]
     Active Substance: CLOFAZIMINE
     Indication: Pulmonary tuberculosis
     Route: 048
     Dates: start: 20230131
  7. POLAPREZINC [Concomitant]
     Active Substance: POLAPREZINC
     Indication: Prophylaxis
     Route: 048
     Dates: start: 20230131
  8. SODIUM FERROUS CITRATE [Concomitant]
     Active Substance: SODIUM FERROUS CITRATE
     Indication: Anaemia
     Route: 048
     Dates: start: 20230307, end: 20230317
  9. FERRIC DERISOMALTOSE [Concomitant]
     Active Substance: FERRIC DERISOMALTOSE
     Indication: Anaemia
     Route: 042
     Dates: start: 20230324, end: 20230704
  10. METHYLCOBALAMIN [Concomitant]
     Active Substance: METHYLCOBALAMIN
     Indication: Hypoaesthesia
     Route: 048
     Dates: start: 20230801, end: 20231016

REACTIONS (5)
  - Anaemia [Recovered/Resolved]
  - Lymph node tuberculosis [Recovering/Resolving]
  - Hypoaesthesia [Recovered/Resolved]
  - Atelectasis [Recovering/Resolving]
  - Lung opacity [Recovering/Resolving]

NARRATIVE: CASE EVENT DATE: 20230307
